FAERS Safety Report 5960286-9 (Version None)
Quarter: 2008Q4

REPORT INFORMATION
  Report Type: 
  Country: None (occurrence: None)
  Receive Date: 20081120
  Receipt Date: 20081113
  Transmission Date: 20090506
  Serious: Yes (Other)
  Sender: FDA-Public Use
  Company Number: GB-AVENTIS-200816670GDDC

PATIENT
  Age: 63 Year
  Sex: Male
  Weight: 81.7 kg

DRUGS (4)
  1. LANTUS [Suspect]
     Route: 058
     Dates: start: 20070226
  2. OPTIPEN (INSULIN PUMP) [Suspect]
  3. TAMSULOSIN HCL [Concomitant]
     Indication: PROSTATISM
     Route: 048
  4. METFORMIN HCL [Concomitant]
     Route: 048

REACTIONS (2)
  - ATRIOVENTRICULAR BLOCK [None]
  - SYNCOPE [None]
